FAERS Safety Report 8215219-1 (Version None)
Quarter: 2012Q1

REPORT INFORMATION
  Report Type: 
  Country: None (occurrence: None)
  Receive Date: 20120229
  Receipt Date: 20110118
  Transmission Date: 20120608
  Serious: Yes (Other)
  Sender: FDA-Public Use
  Company Number: PHHY2011US03857

PATIENT
  Age: 63 Year
  Sex: Female

DRUGS (5)
  1. BACTRIM [Concomitant]
  2. NEORAL [Suspect]
     Indication: RENAL TRANSPLANT
  3. CLONIDINE [Concomitant]
  4. PREDNISONE [Concomitant]
  5. CELLCEPT [Concomitant]

REACTIONS (1)
  - SKIN CANCER [None]
